FAERS Safety Report 15535908 (Version 1)
Quarter: 2018Q4

REPORT INFORMATION
  Report Type: Spontaneous
  Country: US (occurrence: US)
  Receive Date: 20181021
  Receipt Date: 20181021
  Transmission Date: 20190205
  Serious: Yes (Disabling, Other)
  Sender: FDA-Public Use
  Company Number: None

PATIENT
  Age: 56 Year
  Sex: Male
  Weight: 72 kg

DRUGS (1)
  1. XIIDRA [Suspect]
     Active Substance: LIFITEGRAST
     Indication: DRY EYE
     Route: 047
     Dates: start: 20180619, end: 20181001

REACTIONS (5)
  - Sinusitis [None]
  - Vision blurred [None]
  - Dysgeusia [None]
  - Job dissatisfaction [None]
  - Therapy cessation [None]

NARRATIVE: CASE EVENT DATE: 20180806
